FAERS Safety Report 12718005 (Version 1)
Quarter: 2016Q3

REPORT INFORMATION
  Report Type: Spontaneous
  Country: US (occurrence: US)
  Receive Date: 20160906
  Receipt Date: 20160906
  Transmission Date: 20161109
  Serious: No
  Sender: FDA-Public Use
  Company Number: US-ELI_LILLY_AND_COMPANY-US201608013061

PATIENT
  Sex: Male

DRUGS (1)
  1. ERBITUX [Suspect]
     Active Substance: CETUXIMAB
     Indication: COLON CANCER METASTATIC
     Dosage: UNK, 2/M
     Route: 065

REACTIONS (7)
  - Wound secretion [Unknown]
  - Asthenia [Unknown]
  - Acne [Unknown]
  - Rash [Unknown]
  - Off label use [Unknown]
  - Nausea [Unknown]
  - Dry skin [Unknown]
